APPROVED DRUG PRODUCT: TEMAZEPAM
Active Ingredient: TEMAZEPAM
Strength: 15MG
Dosage Form/Route: CAPSULE;ORAL
Application: A201781 | Product #002 | TE Code: AB
Applicant: PRINSTON PHARMACEUTICAL INC
Approved: Jun 4, 2015 | RLD: No | RS: No | Type: RX